FAERS Safety Report 24006148 (Version 1)
Quarter: 2024Q2

REPORT INFORMATION
  Report Type: Spontaneous
  Country: US (occurrence: US)
  Receive Date: 20240624
  Receipt Date: 20240624
  Transmission Date: 20240716
  Serious: Yes (Hospitalization, Other)
  Sender: FDA-Public Use
  Company Number: US-MARINUS PHARMACEUTICALS, INC.-MAR2024000121

PATIENT

DRUGS (1)
  1. ZTALMY [Suspect]
     Active Substance: GANAXOLONE
     Indication: Product used for unknown indication
     Dosage: 7 MILLILITER, TID
     Route: 048

REACTIONS (2)
  - Seizure [Unknown]
  - Pneumonia [Unknown]
